FAERS Safety Report 8202435-8 (Version None)
Quarter: 2012Q1

REPORT INFORMATION
  Report Type: 
  Country: None (occurrence: None)
  Receive Date: 20120312
  Receipt Date: 20111229
  Transmission Date: 20120608
  Serious: No
  Sender: FDA-Public Use
  Company Number: US-ABBOTT-11P-163-0887485-00

PATIENT
  Sex: Female
  Weight: 61.29 kg

DRUGS (2)
  1. UNKNOWN MIGRAIN HEADACHE MEDICATION [Concomitant]
     Indication: MIGRAINE
  2. DEPAKOTE [Suspect]
     Indication: CONVULSION
     Dates: start: 20080101, end: 20080101

REACTIONS (2)
  - HEADACHE [None]
  - NAUSEA [None]
